FAERS Safety Report 6990847-X (Version None)
Quarter: 2010Q3

REPORT INFORMATION
  Report Type: 
  Country: None (occurrence: None)
  Receive Date: 20100916
  Receipt Date: 20090817
  Transmission Date: 20110219
  Serious: Yes (Other)
  Sender: FDA-Public Use
  Company Number: HQWYE697011OCT04

PATIENT
  Age: 71 Year
  Sex: Female

DRUGS (7)
  1. PREMARIN [Suspect]
     Indication: MENOPAUSAL SYMPTOMS
     Dosage: UNKNOWN
     Route: 048
     Dates: start: 19900101
  2. PREMARIN [Suspect]
     Indication: PROPHYLAXIS
  3. PREMARIN [Suspect]
     Indication: CARDIAC DISORDER
  4. CYCRIN [Suspect]
  5. MEDROXYPROGESTERONE ACETATE [Suspect]
     Indication: MENOPAUSAL SYMPTOMS
  6. MEDROXYPROGESTERONE ACETATE [Suspect]
     Indication: PROPHYLAXIS
  7. MEDROXYPROGESTERONE ACETATE [Suspect]
     Indication: CARDIAC DISORDER

REACTIONS (1)
  - BREAST CANCER [None]
